FAERS Safety Report 12304579 (Version 1)
Quarter: 2016Q2

REPORT INFORMATION
  Report Type: Spontaneous
  Country: RS (occurrence: RS)
  Receive Date: 20160426
  Receipt Date: 20160426
  Transmission Date: 20160815
  Serious: Yes (Life-Threatening, Hospitalization, Other)
  Sender: FDA-Public Use
  Company Number: RS-ALVOGEN-2016-ALVOGEN-023837

PATIENT
  Age: 55 Year
  Sex: Female

DRUGS (3)
  1. DEXAMETHASONE. [Suspect]
     Active Substance: DEXAMETHASONE
     Indication: PLASMACYTOMA
  2. VINCRISTINE [Suspect]
     Active Substance: VINCRISTINE
     Indication: PLASMACYTOMA
  3. DOXORUBICIN [Suspect]
     Active Substance: DOXORUBICIN
     Indication: PLASMACYTOMA

REACTIONS (2)
  - Drug ineffective [Recovered/Resolved]
  - Gastrointestinal obstruction [Recovered/Resolved]
